FAERS Safety Report 15377977 (Version 1)
Quarter: 2018Q3

REPORT INFORMATION
  Report Type: Report from Study
  Country: US (occurrence: US)
  Receive Date: 20180913
  Receipt Date: 20180913
  Transmission Date: 20181010
  Serious: Yes (Other)
  Sender: FDA-Public Use
  Company Number: US-ASTELLAS-2018US040145

PATIENT
  Age: 75 Year
  Sex: Male

DRUGS (1)
  1. ENZALUTAMIDE [Suspect]
     Active Substance: ENZALUTAMIDE
     Indication: RENAL CANCER
     Route: 048
     Dates: start: 20180720

REACTIONS (4)
  - Syncope [Unknown]
  - Product use in unapproved indication [Unknown]
  - Fatigue [Unknown]
  - Weight decreased [Unknown]
